FAERS Safety Report 4439162-9 (Version None)
Quarter: 2004Q3

REPORT INFORMATION
  Report Type: 
  Country: None (occurrence: None)
  Receive Date: 20040831
  Receipt Date: 20040825
  Transmission Date: 20050211
  Serious: Yes (Hospitalization)
  Sender: FDA-Public Use
  Company Number: 04-08-1229

PATIENT
  Age: 84 Year
  Sex: Male

DRUGS (14)
  1. METFORMIN HCL [Suspect]
     Indication: DIABETES MELLITUS NON-INSULIN-DEPENDENT
     Dosage: ORAL
     Route: 048
  2. GLIPIZIDE [Concomitant]
  3. FLUTICASONE PROPIONATE [Concomitant]
  4. IPRATROPIUM BROMIDE [Concomitant]
  5. PIOGLITAZONE HCL [Concomitant]
  6. PREDNISONE [Concomitant]
  7. ASPIRIN [Concomitant]
  8. BETOPIC OPHTHALMIC SOLUTION [Concomitant]
  9. DICLOFENAC OPHTHALMIC SOLUTION [Concomitant]
  10. DORZOLAMIDE OPHTHALMIC SOLUTION [Concomitant]
  11. INSULIN [Concomitant]
  12. FUROSEMIDE [Concomitant]
  13. POTASSIUM CHLORIDE [Concomitant]
  14. MONTELUKAST SODIUM [Concomitant]

REACTIONS (12)
  - ABNORMAL BEHAVIOUR [None]
  - BLOOD GLUCOSE INCREASED [None]
  - BLOOD LACTIC ACID DECREASED [None]
  - BLOOD UREA INCREASED [None]
  - CEREBRAL ATHEROSCLEROSIS [None]
  - CONFUSIONAL STATE [None]
  - DISORIENTATION [None]
  - DRUG TOXICITY [None]
  - HEREDITARY CEREBRAL DEGENERATION [None]
  - LUNG HYPERINFLATION [None]
  - PO2 INCREASED [None]
  - RESPIRATORY ALKALOSIS [None]
